FAERS Safety Report 15490267 (Version 3)
Quarter: 2018Q4

REPORT INFORMATION
  Report Type: Spontaneous
  Country: IT (occurrence: IT)
  Receive Date: 20181011
  Receipt Date: 20181022
  Transmission Date: 20190205
  Serious: Yes (Other)
  Sender: FDA-Public Use
  Company Number: IT-PFIZER INC-2018409428

PATIENT
  Age: 56 Year
  Sex: Male
  Weight: 94 kg

DRUGS (2)
  1. CISPLATIN. [Suspect]
     Active Substance: CISPLATIN
     Indication: CHOLANGIOCARCINOMA
     Dosage: 35 MG, CYCLIC
     Route: 042
     Dates: start: 20180802, end: 20180913
  2. GEMCITABINE HYDROCHLORIDE. [Suspect]
     Active Substance: GEMCITABINE HYDROCHLORIDE
     Indication: CHOLANGIOCARCINOMA
     Dosage: 1400 MG, CYCLIC
     Route: 042
     Dates: start: 20180802, end: 20180913

REACTIONS (2)
  - Haemorrhoids [Recovering/Resolving]
  - Rectal haemorrhage [Recovering/Resolving]

NARRATIVE: CASE EVENT DATE: 20180826
